FAERS Safety Report 10022561 (Version 1)
Quarter: 2014Q1

REPORT INFORMATION
  Report Type: Spontaneous
  Country: GB (occurrence: GB)
  Receive Date: 20140319
  Receipt Date: 20140319
  Transmission Date: 20141002
  Serious: Yes (Other)
  Sender: FDA-Public Use
  Company Number: GB-ELI_LILLY_AND_COMPANY-GB201403002187

PATIENT
  Age: 19 Year
  Sex: Female
  Weight: 50 kg

DRUGS (4)
  1. PROZAC [Suspect]
     Indication: DEPRESSION
     Dosage: 20 MG, UNKNOWN
     Route: 048
     Dates: start: 20140208
  2. ALCOHOL [Interacting]
     Indication: PRODUCT USED FOR UNKNOWN INDICATION
     Dosage: UNK, UNKNOWN
     Route: 065
  3. LEVOTHYROXINE [Concomitant]
     Dosage: 50 UG, UNKNOWN
     Route: 065
  4. YASMINE [Concomitant]
     Indication: CONTRACEPTION
     Dosage: UNK UNK, UNKNOWN

REACTIONS (13)
  - Self-injurious ideation [Recovering/Resolving]
  - Loss of consciousness [Unknown]
  - Suicidal ideation [Recovering/Resolving]
  - Aggression [Recovering/Resolving]
  - Hostility [Recovering/Resolving]
  - Alcohol poisoning [Unknown]
  - Personality change [Recovering/Resolving]
  - Panic attack [Recovering/Resolving]
  - Amnesia [Not Recovered/Not Resolved]
  - Depression [Not Recovered/Not Resolved]
  - Hyperhidrosis [Unknown]
  - Heart rate increased [Unknown]
  - Alcohol interaction [Unknown]
